FAERS Safety Report 6753992-X (Version None)
Quarter: 2010Q2

REPORT INFORMATION
  Report Type: 
  Country: None (occurrence: None)
  Receive Date: 20100603
  Receipt Date: 20100525
  Transmission Date: 20101027
  Serious: Yes (Hospitalization)
  Sender: FDA-Public Use
  Company Number: B0392552A

PATIENT
  Sex: Male
  Weight: 3.3 kg

DRUGS (1)
  1. PAROXETINE HCL [Suspect]
     Dosage: 10MG PER DAY

REACTIONS (7)
  - CHILLS [None]
  - COMPLICATION OF PREGNANCY [None]
  - DRUG EXPOSURE DURING PREGNANCY [None]
  - DRUG WITHDRAWAL SYNDROME NEONATAL [None]
  - HYPERREFLEXIA [None]
  - HYPERTONIA [None]
  - TACHYPNOEA [None]
